FAERS Safety Report 7260283-X (Version None)
Quarter: 2011Q1

REPORT INFORMATION
  Report Type: 
  Country: None (occurrence: None)
  Receive Date: 20110130
  Receipt Date: 20100910
  Transmission Date: 20110831
  Serious: No
  Sender: FDA-Public Use
  Company Number: US-ABBOTT-10P-163-0670216-00

PATIENT
  Age: 45 Year
  Sex: Female

DRUGS (3)
  1. REVLIMID [Concomitant]
     Indication: MYELODYSPLASTIC SYNDROME
  2. HUMIRA [Suspect]
     Indication: RHEUMATOID ARTHRITIS
     Dates: start: 20030901
  3. ASPIRIN [Concomitant]
     Indication: MYELODYSPLASTIC SYNDROME

REACTIONS (1)
  - CANDIDIASIS [None]
